FAERS Safety Report 7994220-7 (Version None)
Quarter: 2011Q4

REPORT INFORMATION
  Report Type: 
  Country: None (occurrence: None)
  Receive Date: 20111220
  Receipt Date: 20111208
  Transmission Date: 20120403
  Serious: Yes (Other)
  Sender: FDA-Public Use
  Company Number: US-JNJFOC-20111112570

PATIENT

DRUGS (3)
  1. AZULFIDINE [Concomitant]
  2. METHOTREXATE [Concomitant]
     Route: 048
  3. REMICADE [Suspect]
     Indication: PRODUCT USED FOR UNKNOWN INDICATION
     Route: 042

REACTIONS (2)
  - ACUTE CORONARY SYNDROME [None]
  - VASCULAR OPERATION [None]
